FAERS Safety Report 8312048-5 (Version None)
Quarter: 2012Q2

REPORT INFORMATION
  Report Type: 
  Country: None (occurrence: None)
  Receive Date: 20120425
  Receipt Date: 20120412
  Transmission Date: 20120825
  Serious: Yes (Hospitalization)
  Sender: FDA-Public Use
  Company Number: IT-ELI_LILLY_AND_COMPANY-IT201204001893

PATIENT
  Sex: Male

DRUGS (4)
  1. ASPIRIN [Concomitant]
     Dosage: 100 MG, UNK
     Dates: start: 20111101, end: 20120328
  2. NEBIVOLOL HCL [Concomitant]
     Dosage: 2500 UG, UNK
     Route: 048
     Dates: start: 20111101, end: 20120328
  3. OLANZAPINE [Suspect]
     Indication: SCHIZOPHRENIA
     Dosage: 300 MG, WEEKLY (1/W)
     Route: 030
     Dates: start: 20111101, end: 20120328
  4. LANOXIN [Concomitant]
     Dosage: 0.125 MG, UNK
     Route: 048
     Dates: start: 20111101, end: 20120328

REACTIONS (4)
  - OVERDOSE [None]
  - SEDATION [None]
  - CARDIAC FIBRILLATION [None]
  - SOPOR [None]
